FAERS Safety Report 11633560 (Version 1)
Quarter: 2015Q4

REPORT INFORMATION
  Report Type: Spontaneous
  Country: US (occurrence: US)
  Receive Date: 20151015
  Receipt Date: 20151015
  Transmission Date: 20160304
  Serious: Yes (Hospitalization, Other)
  Sender: FDA-Public Use
  Company Number: US-ASTRAZENECA-2015SE97279

PATIENT
  Age: 27153 Day
  Sex: Female
  Weight: 87.5 kg

DRUGS (2)
  1. TUDORZA PRESSAIR [Suspect]
     Active Substance: ACLIDINIUM BROMIDE
     Indication: DYSPNOEA
     Route: 055
  2. TUDORZA PRESSAIR [Suspect]
     Active Substance: ACLIDINIUM BROMIDE
     Indication: BRONCHIECTASIS
     Route: 055

REACTIONS (6)
  - Gastrointestinal carcinoma [Unknown]
  - Product use issue [Unknown]
  - Pain [Unknown]
  - Intentional product misuse [Unknown]
  - Off label use [Unknown]
  - Intestinal obstruction [Recovered/Resolved]
